FAERS Safety Report 8999922 (Version 1)
Quarter: 2013Q1

REPORT INFORMATION
  Report Type: Spontaneous
  Country: BR (occurrence: BR)
  Receive Date: 20130102
  Receipt Date: 20130102
  Transmission Date: 20140127
  Serious: Yes (Other)
  Sender: FDA-Public Use
  Company Number: BR-PFIZER INC-2012329766

PATIENT
  Sex: Female

DRUGS (1)
  1. PROVERA [Suspect]

REACTIONS (2)
  - Inappropriate schedule of drug administration [Unknown]
  - Abortion [Unknown]
